FAERS Safety Report 17471699 (Version 1)
Quarter: 2020Q1

REPORT INFORMATION
  Report Type: Report from Study
  Country: US (occurrence: US)
  Receive Date: 20200228
  Receipt Date: 20200228
  Transmission Date: 20200409
  Serious: Yes (Hospitalization, Other)
  Sender: FDA-Public Use
  Company Number: US-ROCHE-2209184

PATIENT
  Age: 61 Year
  Sex: Male
  Weight: 80.81 kg

DRUGS (6)
  1. OCREVUS [Suspect]
     Active Substance: OCRELIZUMAB
     Indication: RELAPSING-REMITTING MULTIPLE SCLEROSIS
     Dosage: ONGOING YES, EVERY 5 AND HALF MONTHS- NOT EVERY 6 MONTHS
     Route: 042
     Dates: start: 201705
  2. OCREVUS [Suspect]
     Active Substance: OCRELIZUMAB
     Indication: MULTIPLE SCLEROSIS
     Route: 065
  3. IBUPROFEN. [Concomitant]
     Active Substance: IBUPROFEN
     Indication: ARTHRALGIA
     Dosage: ONGOING NO, EVERY 12 HOURS
     Route: 048
  4. HYDROCODONE [Concomitant]
     Active Substance: HYDROCODONE
     Indication: ARTHRALGIA
     Dosage: ONGOING YES,EVERY 12 HOURS
     Route: 048
  5. ADDERALL [Concomitant]
     Active Substance: AMPHETAMINE ASPARTATE\AMPHETAMINE SULFATE\DEXTROAMPHETAMINE SACCHARATE\DEXTROAMPHETAMINE SULFATE
     Indication: FATIGUE
     Dosage: ONGOING YES
     Route: 048
  6. PRILOSEC [Concomitant]
     Active Substance: OMEPRAZOLE MAGNESIUM
     Indication: GASTROOESOPHAGEAL REFLUX DISEASE
     Dosage: ONGOING YES, IN MORNING WITH HALF A CUP OF MILK
     Route: 065

REACTIONS (16)
  - Asthenia [Unknown]
  - Skin abrasion [Recovered/Resolved]
  - Off label use [Unknown]
  - Gastrooesophageal reflux disease [Recovered/Resolved]
  - Weight decreased [Recovered/Resolved]
  - Therapeutic response shortened [Unknown]
  - Pulmonary mass [Recovered/Resolved]
  - Infection [Recovered/Resolved]
  - Malaise [Recovered/Resolved]
  - Intentional product use issue [Unknown]
  - Oropharyngeal candidiasis [Recovered/Resolved]
  - Throat irritation [Recovered/Resolved]
  - Hiccups [Recovered/Resolved]
  - Multiple sclerosis relapse [Recovered/Resolved]
  - Fatigue [Unknown]
  - Immunoglobulins decreased [Recovered/Resolved]

NARRATIVE: CASE EVENT DATE: 201802
